FAERS Safety Report 24914484 (Version 1)
Quarter: 2025Q1

REPORT INFORMATION
  Report Type: Spontaneous
  Country: SA (occurrence: SA)
  Receive Date: 20250203
  Receipt Date: 20250203
  Transmission Date: 20250408
  Serious: Yes (Hospitalization, Other)
  Sender: NOVITIUM PHARMA
  Company Number: SA-NOVITIUMPHARMA-2025SANVP00275

PATIENT
  Age: 20 Year
  Sex: Male

DRUGS (6)
  1. PREDNISONE [Suspect]
     Active Substance: PREDNISONE
     Indication: Immunosuppressant drug therapy
  2. APIXABAN [Concomitant]
     Active Substance: APIXABAN
     Indication: Subclavian vein thrombosis
  3. TACROLIMUS [Concomitant]
     Active Substance: TACROLIMUS
     Indication: Prophylaxis against transplant rejection
  4. HYDROCORTISONE [Concomitant]
     Active Substance: HYDROCORTISONE
     Indication: Product used for unknown indication
  5. HEPARIN [Concomitant]
     Active Substance: HEPARIN SODIUM
     Indication: Subclavian vein thrombosis
  6. VITAMIN K [Concomitant]
     Active Substance: PHYTONADIONE
     Indication: Subclavian vein thrombosis

REACTIONS (5)
  - Obesity [Recovering/Resolving]
  - Type 2 diabetes mellitus [Unknown]
  - Insulin C-peptide increased [Unknown]
  - Pancreatic failure [Unknown]
  - Hyperinsulinaemia [Unknown]
